FAERS Safety Report 8462322-7 (Version None)
Quarter: 2012Q2

REPORT INFORMATION
  Report Type: 
  Country: None (occurrence: None)
  Receive Date: 20120619
  Receipt Date: 20120619
  Transmission Date: 20120825
  Serious: Yes (Other)
  Sender: FDA-Public Use
  Company Number: None

PATIENT
  Sex: Male

DRUGS (1)
  1. KENALOG [Suspect]
     Indication: ALOPECIA
     Dosage: 1.5ML -15MG- ONE TIME INTRALESIONAL
     Route: 026
     Dates: start: 20120618, end: 20120618

REACTIONS (2)
  - PRODUCT PACKAGING ISSUE [None]
  - ERYTHEMA [None]
